FAERS Safety Report 19944931 (Version 1)
Quarter: 2021Q4

REPORT INFORMATION
  Report Type: Report from Study
  Country: US (occurrence: US)
  Receive Date: 20211012
  Receipt Date: 20211012
  Transmission Date: 20220303
  Serious: Yes (Other)
  Sender: FDA-Public Use
  Company Number: US-UCBSA-2021019587

PATIENT
  Age: 71 Year
  Sex: Female
  Weight: 61.6 kg

DRUGS (3)
  1. LACOSAMIDE [Suspect]
     Active Substance: LACOSAMIDE
     Indication: Seizure
     Dosage: 200MG .5 TABLET IN MORNING AND 1 TABLET IN EVENING
     Dates: start: 201811
  2. LACOSAMIDE [Suspect]
     Active Substance: LACOSAMIDE
     Dosage: 200 MG VIMPAT, AT DOSE OF 1.5 TABLET IN AM AND 1 TABELT AT PM
  3. LISINOPRIL [Concomitant]
     Active Substance: LISINOPRIL
     Indication: Hypertension
     Dosage: 30 MILLIGRAM, ONCE DAILY (QD)

REACTIONS (7)
  - Fall [Not Recovered/Not Resolved]
  - Sleep disorder [Recovered/Resolved]
  - Seizure [Not Recovered/Not Resolved]
  - Dizziness [Not Recovered/Not Resolved]
  - Wrong technique in product usage process [Unknown]
  - Prescribed overdose [Unknown]
  - Product prescribing issue [Unknown]

NARRATIVE: CASE EVENT DATE: 20201118
